FAERS Safety Report 19232323 (Version 1)
Quarter: 2021Q2

REPORT INFORMATION
  Report Type: Spontaneous
  Country: FR (occurrence: FR)
  Receive Date: 20210507
  Receipt Date: 20210507
  Transmission Date: 20210717
  Serious: Yes (Disabling)
  Sender: FDA-Public Use
  Company Number: FR-TEVA-2021-FR-1908306

PATIENT
  Age: 8 Year
  Sex: Female

DRUGS (7)
  1. AMIKLIN [Suspect]
     Active Substance: AMIKACIN SULFATE
     Indication: STAPHYLOCOCCAL INFECTION
     Dosage: 38MG IV EVERY 36 HOURS
     Route: 041
     Dates: start: 20070629, end: 20070701
  2. CLAFORAN [Concomitant]
     Active Substance: CEFOTAXIME SODIUM
     Indication: STAPHYLOCOCCAL INFECTION
     Dosage: 110MG OVER 30 MINUTES EVERY 12 HOURS
     Dates: start: 20070620, end: 20070621
  3. FOSFOCINE [Concomitant]
     Active Substance: FOSFOMYCIN
     Indication: STAPHYLOCOCCAL INFECTION
     Dosage: 210MG OVER 4 HOURS EVERY 12 HOURS
     Route: 041
     Dates: start: 20070621, end: 20070708
  4. VANCOMYCINE [Suspect]
     Active Substance: VANCOMYCIN
     Indication: STAPHYLOCOCCAL INFECTION
     Dosage: 30MG/KG
     Route: 041
     Dates: start: 20070620, end: 20070622
  5. FLAGYL [Concomitant]
     Active Substance: METRONIDAZOLE\METRONIDAZOLE HYDROCHLORIDE
     Indication: STAPHYLOCOCCAL INFECTION
     Dosage: 32MG
     Route: 041
     Dates: start: 20070620, end: 20070621
  6. AMIKLIN [Suspect]
     Active Substance: AMIKACIN SULFATE
     Dosage: 38MG EN IV TOUTES LES 36 HEURES
     Route: 041
     Dates: start: 20070620, end: 20070621
  7. BRISTOPEN [Concomitant]
     Active Substance: OXACILLIN SODIUM
     Indication: STAPHYLOCOCCAL INFECTION
     Dosage: 110MG OVER 30 MINUTES EVERY 12 HOURS
     Route: 041
     Dates: start: 20070622, end: 20070708

REACTIONS (1)
  - Deafness bilateral [Not Recovered/Not Resolved]

NARRATIVE: CASE EVENT DATE: 20151027
